FAERS Safety Report 8473994-5 (Version None)
Quarter: 2012Q2

REPORT INFORMATION
  Report Type: 
  Country: None (occurrence: None)
  Receive Date: 20120628
  Receipt Date: 20120405
  Transmission Date: 20120825
  Serious: No
  Sender: FDA-Public Use
  Company Number: US-MYLANLABS-2012S1005534

PATIENT
  Age: 31 Year
  Sex: Male
  Weight: 105.69 kg

DRUGS (2)
  1. CLOZAPINE [Suspect]
     Dates: start: 20120229
  2. CLOZAPINE [Suspect]
     Indication: SCHIZOPHRENIA

REACTIONS (3)
  - GRANULOCYTOPENIA [None]
  - HAEMOGLOBIN DECREASED [None]
  - HAEMATOCRIT DECREASED [None]
